FAERS Safety Report 5611911-3 (Version None)
Quarter: 2008Q1

REPORT INFORMATION
  Report Type: 
  Country: None (occurrence: None)
  Receive Date: 20080131
  Receipt Date: 20080131
  Transmission Date: 20080703
  Serious: Yes (Hospitalization)
  Sender: FDA-Public Use
  Company Number: None

PATIENT
  Age: 82 Year
  Sex: Male

DRUGS (2)
  1. ZOSYN [Suspect]
     Dosage: 4.5 GM Q8H IV
     Route: 042
     Dates: start: 20071024, end: 20071105
  2. ZYVOX [Suspect]
     Dosage: 600 MG Q12H IV
     Route: 042
     Dates: start: 20071011, end: 20071023

REACTIONS (2)
  - PYREXIA [None]
  - THROMBOCYTOPENIA [None]
